FAERS Safety Report 20956593 (Version 4)
Quarter: 2022Q3

REPORT INFORMATION
  Report Type: Spontaneous
  Country: JP (occurrence: JP)
  Receive Date: 20220614
  Receipt Date: 20220801
  Transmission Date: 20221027
  Serious: Yes (Hospitalization)
  Sender: FDA-Public Use
  Company Number: JP-NOVARTISPH-NVSJ2022JP091990

PATIENT
  Age: 76 Year
  Sex: Female

DRUGS (2)
  1. NEORAL [Suspect]
     Active Substance: CYCLOSPORINE
     Indication: Neuromyelitis optica spectrum disorder
     Dosage: 25 MG/DAY
     Route: 048
  2. PREDNISOLONE [Suspect]
     Active Substance: PREDNISOLONE
     Indication: Neuromyelitis optica spectrum disorder
     Dosage: 20 MG/DAY
     Route: 048

REACTIONS (3)
  - Obstructive pancreatitis [Recovered/Resolved]
  - Pancreatitis necrotising [Recovered/Resolved]
  - Product use in unapproved indication [Unknown]
